FAERS Safety Report 9605889 (Version 1)
Quarter: 2013Q4

REPORT INFORMATION
  Report Type: Spontaneous
  Country: GB (occurrence: GB)
  Receive Date: 20131008
  Receipt Date: 20131008
  Transmission Date: 20140711
  Serious: Yes (Disabling)
  Sender: FDA-Public Use
  Company Number: CHNY2013GB002159

PATIENT
  Sex: 0

DRUGS (2)
  1. NICOTINE PATCH [Suspect]
     Indication: SMOKING CESSATION THERAPY
     Dosage: UNK, UNK
     Route: 061
  2. ST. JOHN^S WORT [Suspect]
     Indication: DEPRESSED MOOD
     Dosage: 2 DF, UNK
     Route: 048
     Dates: start: 20130812, end: 20130823

REACTIONS (6)
  - Guttate psoriasis [Not Recovered/Not Resolved]
  - Photosensitivity reaction [Not Recovered/Not Resolved]
  - Pemphigoid [Not Recovered/Not Resolved]
  - Rash generalised [Not Recovered/Not Resolved]
  - Carpal tunnel syndrome [Unknown]
  - Sunburn [Unknown]
